FAERS Safety Report 16342590 (Version 1)
Quarter: 2019Q2

REPORT INFORMATION
  Report Type: Spontaneous
  Country: GB (occurrence: GB)
  Receive Date: 20190522
  Receipt Date: 20190522
  Transmission Date: 20190711
  Serious: Yes (Disabling, Other)
  Sender: FDA-Public Use
  Company Number: GB-009507513-1905GBR009650

PATIENT
  Age: 35 Year
  Sex: Female
  Weight: 63.5 kg

DRUGS (1)
  1. MONTELUKAST SODIUM. [Suspect]
     Active Substance: MONTELUKAST SODIUM
     Indication: IDIOPATHIC ANGIOEDEMA
     Dosage: 10 MG, AT NIGHT
     Route: 048
     Dates: start: 20170629, end: 20170704

REACTIONS (9)
  - Depressed mood [Unknown]
  - Aphasia [Recovering/Resolving]
  - Neuropathy peripheral [Not Recovered/Not Resolved]
  - Paraesthesia [Unknown]
  - Discomfort [Unknown]
  - Crying [Unknown]
  - Feeling abnormal [Not Recovered/Not Resolved]
  - Hypoaesthesia [Unknown]
  - Memory impairment [Not Recovered/Not Resolved]

NARRATIVE: CASE EVENT DATE: 20170629
